FAERS Safety Report 4773035-7 (Version None)
Quarter: 2005Q3

REPORT INFORMATION
  Report Type: 
  Country: None (occurrence: None)
  Receive Date: 20050919
  Receipt Date: 20050905
  Transmission Date: 20060218
  Serious: Yes (Other)
  Sender: FDA-Public Use
  Company Number: US-GLAXOSMITHKLINE-A0573251A

PATIENT
  Age: 2 Year
  Sex: Female
  Weight: 11 kg

DRUGS (5)
  1. TUMS SMOOTH DISSOLVE TABLETS, PEPPERMINT [Suspect]
     Dosage: 58TAB CUMULATIVE DOSE
     Route: 048
     Dates: start: 20050903, end: 20050903
  2. PREVACID [Concomitant]
     Indication: GASTROOESOPHAGEAL REFLUX DISEASE
     Route: 048
  3. FLUORIDE [Concomitant]
     Indication: PROPHYLAXIS
     Route: 048
  4. MIRALAX [Concomitant]
     Route: 048
  5. VALIUM [Concomitant]
     Indication: EPILEPSY
     Route: 054

REACTIONS (5)
  - ACCIDENTAL OVERDOSE [None]
  - CONVULSION [None]
  - HYPERSOMNIA [None]
  - IRRITABILITY [None]
  - VOMITING [None]
